FAERS Safety Report 11287865 (Version 2)
Quarter: 2019Q2

REPORT INFORMATION
  Report Type: Spontaneous
  Country: US (occurrence: US)
  Receive Date: 20150721
  Receipt Date: 20190510
  Transmission Date: 20190711
  Serious: Yes (Death, Other)
  Sender: FDA-Public Use
  Company Number: US-ASTRAZENECA-2015SE70141

PATIENT
  Age: 25779 Day
  Sex: Male
  Weight: 115.7 kg

DRUGS (9)
  1. ASPIRIN. [Concomitant]
     Active Substance: ASPIRIN
  2. BYETTA [Suspect]
     Active Substance: EXENATIDE
     Route: 058
     Dates: start: 200801, end: 201104
  3. BYETTA [Suspect]
     Active Substance: EXENATIDE
     Dosage: 5 MGL TWICE DAILY
     Route: 058
     Dates: start: 201204
  4. IRBESARTAN. [Concomitant]
     Active Substance: IRBESARTAN
  5. JANUVIA [Suspect]
     Active Substance: SITAGLIPTIN PHOSPHATE
     Dosage: 100 MG ONCE DAILY
     Route: 065
     Dates: start: 20111103, end: 201204
  6. LEVOTHYROXINE. [Concomitant]
     Active Substance: LEVOTHYROXINE
  7. BYETTA [Suspect]
     Active Substance: EXENATIDE
     Dosage: 10 MCG TWICE DAILY
     Route: 058
     Dates: start: 20060515, end: 201105
  8. CARVEDILOL. [Concomitant]
     Active Substance: CARVEDILOL
  9. JANUVIA [Suspect]
     Active Substance: SITAGLIPTIN PHOSPHATE
     Route: 065
     Dates: start: 201111, end: 201203

REACTIONS (5)
  - Adenocarcinoma pancreas [Unknown]
  - Type 2 diabetes mellitus [Fatal]
  - Hypertension [Fatal]
  - Chronic kidney disease [Fatal]
  - Pancreatic carcinoma [Fatal]

NARRATIVE: CASE EVENT DATE: 20120720
